FAERS Safety Report 9426355 (Version 1)
Quarter: 2013Q3

REPORT INFORMATION
  Report Type: Spontaneous
  Country: US (occurrence: None)
  Receive Date: 20130729
  Receipt Date: 20130729
  Transmission Date: 20140515
  Serious: Yes (Death)
  Sender: FDA-Public Use
  Company Number: None

PATIENT
  Age: 78 Year
  Sex: Male
  Weight: 106.5 kg

DRUGS (10)
  1. DOFETILIDE [Suspect]
     Indication: ATRIAL FIBRILLATION
     Dosage: 250 MG TWICE DAILY ORAL?07/17-07/19 (INPATIENT)?OUTPATIENT DURATION UNKNOWN
     Route: 048
  2. MIDAZOLAM [Concomitant]
  3. MORPHINE [Concomitant]
  4. PHYTONADIONE [Concomitant]
  5. ATORVASTATIN [Concomitant]
  6. CEFAZOLIN [Concomitant]
  7. DIPHENHYDRAMINE [Concomitant]
  8. LISINOPRIL [Concomitant]
  9. METOPROLOL [Concomitant]
  10. PANTOPRAZOLE [Concomitant]

REACTIONS (5)
  - Drug dose omission [None]
  - Electrocardiogram QT prolonged [None]
  - Ventricular tachycardia [None]
  - Torsade de pointes [None]
  - Treatment failure [None]
